FAERS Safety Report 22210034 (Version 4)
Quarter: 2023Q2

REPORT INFORMATION
  Report Type: Report from Study
  Country: KR (occurrence: None)
  Receive Date: 20230414
  Receipt Date: 20230622
  Transmission Date: 20230722
  Serious: Yes (Hospitalization)
  Sender: FDA-Public Use
  Company Number: KR-ROCHE-3324358

PATIENT
  Age: 70 Year
  Sex: Male
  Weight: 60.8 kg

DRUGS (20)
  1. RITUXIMAB [Suspect]
     Active Substance: RITUXIMAB
     Indication: Non-Hodgkin^s lymphoma unspecified histology indolent
     Dosage: ON 06/FEB/2023 12:35 PM TO 2:07 PM, HE RECEIVED MOST RECENT DOSE OF RITUXIMAB PRIOR TO AE/SAE 633.75
     Route: 041
     Dates: start: 20230113
  2. LENALIDOMIDE [Suspect]
     Active Substance: LENALIDOMIDE
     Indication: Non-Hodgkin^s lymphoma unspecified histology indolent
     Dosage: ON 06/MAR/2023 10:00 AM, HE RECEIVED MOST RECENT DOSE OF LENALIDOMIDE PRIOR TO AE/SAE 15 MG
     Route: 048
     Dates: start: 20230113
  3. ASPIRIN [Concomitant]
     Active Substance: ASPIRIN
     Route: 048
     Dates: start: 20230113, end: 20230320
  4. CODEINE PHOSPHATE [Concomitant]
     Active Substance: CODEINE PHOSPHATE
     Indication: Cough
     Route: 048
     Dates: start: 20230206, end: 20230313
  5. DULACKHAN EASY [Concomitant]
     Indication: Constipation
     Dosage: 1 OTHER, SYRUP 1.34G/ML
     Route: 048
     Dates: start: 20230313, end: 20230320
  6. DULACKHAN EASY [Concomitant]
     Dosage: 1 OTHER, SYRUP 1.34G/ML
     Route: 048
     Dates: start: 20230328, end: 20230404
  7. DULACKHAN EASY [Concomitant]
     Dosage: 1 OTHER
     Route: 048
     Dates: start: 20230405, end: 20230408
  8. MAGNESIUM OXIDE [Concomitant]
     Active Substance: MAGNESIUM OXIDE
     Indication: Constipation
     Route: 048
     Dates: start: 20230313, end: 20230320
  9. MAGNESIUM OXIDE [Concomitant]
     Active Substance: MAGNESIUM OXIDE
     Route: 048
     Dates: start: 20230328, end: 20230411
  10. SOLONDO (SOUTH KOREA) [Concomitant]
     Indication: Pneumonitis
     Route: 048
     Dates: start: 20230322, end: 20230327
  11. SOLONDO (SOUTH KOREA) [Concomitant]
     Route: 048
     Dates: start: 20230328, end: 20230330
  12. LANSOPRAZOLE [Concomitant]
     Active Substance: LANSOPRAZOLE
     Route: 048
     Dates: start: 20230322, end: 20230404
  13. MEGACE [Concomitant]
     Active Substance: MEGESTROL ACETATE
     Indication: Decreased appetite
     Dosage: 1 OTHER
     Route: 048
     Dates: start: 20230322, end: 20230404
  14. VENITOL [Concomitant]
     Indication: Constipation
     Route: 048
     Dates: start: 20230328, end: 20230411
  15. ACETPHEN PREMIX [Concomitant]
     Dosage: 2 OTHER
     Route: 042
     Dates: start: 20230331, end: 20230331
  16. ALBUMIN HUMAN [Concomitant]
     Active Substance: ALBUMIN HUMAN
     Indication: Hypoalbuminaemia
     Route: 042
     Dates: start: 20230402, end: 20230402
  17. ALBUMIN HUMAN [Concomitant]
     Active Substance: ALBUMIN HUMAN
     Route: 042
     Dates: start: 20230410, end: 20230410
  18. GASTER [Concomitant]
     Active Substance: FAMOTIDINE
     Route: 042
     Dates: start: 20230405, end: 20230409
  19. LAFUTIDINE [Concomitant]
     Active Substance: LAFUTIDINE
     Route: 048
     Dates: start: 20230410, end: 20230411
  20. METHYSOL [Concomitant]
     Route: 042
     Dates: start: 20230411, end: 20230411

REACTIONS (2)
  - COVID-19 pneumonia [Recovered/Resolved]
  - Pneumocystis jirovecii infection [Not Recovered/Not Resolved]

NARRATIVE: CASE EVENT DATE: 20230331
